FAERS Safety Report 7285434-2 (Version None)
Quarter: 2011Q1

REPORT INFORMATION
  Report Type: 
  Country: None (occurrence: None)
  Receive Date: 20110210
  Receipt Date: 20101110
  Transmission Date: 20110831
  Serious: No
  Sender: FDA-Public Use
  Company Number: GB-BAYER-201046898GPV

PATIENT
  Sex: Female

DRUGS (1)
  1. MIRENA [Suspect]
     Indication: MENORRHAGIA
     Route: 015
     Dates: start: 20101018, end: 20101110

REACTIONS (11)
  - INSOMNIA [None]
  - PAIN [None]
  - ABASIA [None]
  - ABDOMINAL PAIN [None]
  - PAIN IN EXTREMITY [None]
  - DYSPNOEA [None]
  - UNEVALUABLE EVENT [None]
  - NAUSEA [None]
  - VAGINAL HAEMORRHAGE [None]
  - EATING DISORDER [None]
  - THINKING ABNORMAL [None]
